FAERS Safety Report 10034739 (Version 2)
Quarter: 2014Q1

REPORT INFORMATION
  Report Type: Spontaneous
  Country: CA (occurrence: CA)
  Receive Date: 20140325
  Receipt Date: 20140325
  Transmission Date: 20141002
  Serious: Yes (Hospitalization, Other)
  Sender: FDA-Public Use
  Company Number: CA-AMGEN-CANSP2013089221

PATIENT
  Age: 77 Year
  Sex: Male

DRUGS (4)
  1. ENBREL [Suspect]
     Indication: RHEUMATOID ARTHRITIS
     Dosage: 50 MG, UNK
     Route: 065
     Dates: start: 20111003
  2. PLAQUENIL /00072602/ [Suspect]
     Indication: PRODUCT USED FOR UNKNOWN INDICATION
     Dosage: UNK
     Route: 065
  3. CARBOCAL [Concomitant]
     Dosage: 80 MG, UNK
  4. OXYCODONE [Concomitant]
     Dosage: UNK

REACTIONS (7)
  - Arrhythmia [Recovered/Resolved]
  - Cataract [Recovered/Resolved]
  - Limb discomfort [Unknown]
  - Somnolence [Not Recovered/Not Resolved]
  - Musculoskeletal pain [Unknown]
  - Arthralgia [Unknown]
  - Pain in extremity [Unknown]
